FAERS Safety Report 9691954 (Version 1)
Quarter: 2013Q4

REPORT INFORMATION
  Report Type: Spontaneous
  Country: US (occurrence: US)
  Receive Date: 20131118
  Receipt Date: 20131118
  Transmission Date: 20140711
  Serious: Yes (Hospitalization, Other)
  Sender: FDA-Public Use
  Company Number: US-AMGEN-USASP2013080537

PATIENT
  Age: 66 Year
  Sex: Male
  Weight: 97.51 kg

DRUGS (1)
  1. ENBREL [Suspect]
     Indication: SKIN DISORDER
     Dosage: 50 MG, QWK
     Route: 058

REACTIONS (2)
  - Toe amputation [Recovered/Resolved]
  - Infection [Recovered/Resolved]
